FAERS Safety Report 5757775-9 (Version None)
Quarter: 2008Q2

REPORT INFORMATION
  Report Type: 
  Country: None (occurrence: None)
  Receive Date: 20080529
  Receipt Date: 20070525
  Transmission Date: 20081010
  Serious: Yes (Other)
  Sender: FDA-Public Use
  Company Number: MK-6034434

PATIENT
  Age: 25 Year
  Sex: Male

DRUGS (5)
  1. CIPROFLOXACIN [Suspect]
     Indication: PYELONEPHRITIS
     Dosage: 500 MG; ORAL
     Route: 048
     Dates: start: 20070423, end: 20070501
  2. CODEINE LINCTUS (NORSK) [Concomitant]
  3. OXYTETRACYCLINE [Concomitant]
  4. PEPPERMINT OIL (MENTHA X PIPERITA OIL) [Concomitant]
  5. TRIMETHOPRIM [Concomitant]

REACTIONS (4)
  - HEPATITIS [None]
  - INFECTIOUS MONONUCLEOSIS [None]
  - JAUNDICE [None]
  - PHARYNGOLARYNGEAL PAIN [None]
